FAERS Safety Report 6360907-5 (Version None)
Quarter: 2009Q3

REPORT INFORMATION
  Report Type: 
  Country: None (occurrence: None)
  Receive Date: 20090918
  Receipt Date: 20090708
  Transmission Date: 20100115
  Serious: Yes (Hospitalization)
  Sender: FDA-Public Use
  Company Number: NZ-ASTRAZENECA-2009SE04231

PATIENT
  Age: 27308 Day
  Sex: Female

DRUGS (1)
  1. FORMOTEROL FUMARATE [Suspect]
     Route: 055
     Dates: start: 19990223

REACTIONS (1)
  - FRACTURE [None]
